FAERS Safety Report 9001456 (Version 1)
Quarter: 2013Q1

REPORT INFORMATION
  Report Type: Spontaneous
  Country: GB (occurrence: GB)
  Receive Date: 20130107
  Receipt Date: 20130107
  Transmission Date: 20140127
  Serious: Yes (Hospitalization)
  Sender: FDA-Public Use
  Company Number: GB-TEVA-378720ISR

PATIENT
  Age: 62 Year
  Sex: Male

DRUGS (15)
  1. LANSOPRAZOLE [Suspect]
     Dosage: 30 MILLIGRAM DAILY;
  2. AMOXICILLIN [Suspect]
     Dosage: 1500 MILLIGRAM DAILY;
     Route: 042
     Dates: start: 20110310, end: 20110310
  3. CLARITHROMYCIN [Suspect]
     Dosage: 1000 MILLIGRAM DAILY;
     Route: 042
     Dates: start: 20110310, end: 20110310
  4. FLUCLOXACILLIN [Suspect]
     Dosage: 2000 MILLIGRAM DAILY;
     Route: 048
     Dates: start: 20110329, end: 20110330
  5. LEVOFLOXACIN [Suspect]
     Dosage: 1000 MILLIGRAM DAILY;
     Route: 042
     Dates: start: 20110311, end: 20110321
  6. MEROPENEM [Suspect]
     Dosage: 3 GRAM DAILY;
     Dates: start: 20110312, end: 20110321
  7. TEICOPLANIN [Suspect]
     Dosage: 800 MILLIGRAM DAILY; 1200 MG STAT THEN 800 MG IN THE MORNING
     Dates: start: 20110310, end: 20110313
  8. ERYTHROMYCIN [Suspect]
     Dosage: 375 MILLIGRAM DAILY;
     Route: 042
     Dates: start: 20110314, end: 20110317
  9. LOPERAMIDE [Concomitant]
     Dosage: 8 MILLIGRAM DAILY;
  10. HYOSCINE BUTYLBROMIDE [Concomitant]
     Dosage: 80 MILLIGRAM DAILY;
  11. FLUOXETINE [Concomitant]
     Dosage: 20 MILLIGRAM DAILY;
  12. PARACETAMOL [Concomitant]
     Dosage: 4 GRAM DAILY; TAKEN AS NEEDED
  13. FUROSEMIDE [Concomitant]
     Dosage: 160 MILLIGRAM DAILY;
  14. SENNA [Concomitant]
     Dosage: 15 MILLIGRAM DAILY; AT NIGHT
  15. FERROUS SULPHATE [Concomitant]
     Dosage: 600 MILLIGRAM DAILY;

REACTIONS (1)
  - Clostridium difficile infection [Unknown]
